FAERS Safety Report 24841885 (Version 1)
Quarter: 2025Q1

REPORT INFORMATION
  Report Type: Spontaneous
  Country: PT (occurrence: PT)
  Receive Date: 20250114
  Receipt Date: 20250114
  Transmission Date: 20250409
  Serious: Yes (Disabling)
  Sender: MERCK
  Company Number: PT-009507513-2501PRT002592

PATIENT
  Age: 35 Year
  Sex: Female

DRUGS (2)
  1. PEMBROLIZUMAB [Suspect]
     Active Substance: PEMBROLIZUMAB
     Indication: Enteropathy-associated T-cell lymphoma
     Dosage: 200 MILLIGRAM, Q3W (EVERY 21 DAYS)
  2. PEMBROLIZUMAB [Suspect]
     Active Substance: PEMBROLIZUMAB
     Dosage: 200 MILLIGRAM, Q3W

REACTIONS (2)
  - Parkinsonism [Recovered/Resolved]
  - Product use in unapproved indication [Unknown]
